FAERS Safety Report 17577073 (Version 1)
Quarter: 2020Q1

REPORT INFORMATION
  Report Type: Spontaneous
  Country: US (occurrence: US)
  Receive Date: 20200319
  Receipt Date: 20200319
  Transmission Date: 20200409
  Serious: No
  Sender: FDA-Public Use
  Company Number: None

PATIENT
  Age: 36 Year
  Sex: Female

DRUGS (3)
  1. COPAXONE [Suspect]
     Active Substance: GLATIRAMER ACETATE
     Indication: MULTIPLE SCLEROSIS
     Route: 058
  2. LEVETIRACETAM. [Concomitant]
     Active Substance: LEVETIRACETAM
  3. DULOXETINE. [Concomitant]
     Active Substance: DULOXETINE

REACTIONS (2)
  - Pregnancy [None]
  - Exposure during pregnancy [None]

NARRATIVE: CASE EVENT DATE: 20200318
